FAERS Safety Report 4404108-6 (Version None)
Quarter: 2004Q3

REPORT INFORMATION
  Report Type: 
  Country: None (occurrence: None)
  Receive Date: 20040719
  Receipt Date: 20040621
  Transmission Date: 20050211
  Serious: Yes (Other)
  Sender: FDA-Public Use
  Company Number: 371654

PATIENT
  Weight: 3.1 kg

DRUGS (1)
  1. NEOTIGASON (ACITRETIN) 10 MG [Suspect]
     Dosage: 1 DOSE FORM DAILY ORAL
     Route: 048
     Dates: start: 20010615, end: 20030715

REACTIONS (1)
  - PREGNANCY [None]
